FAERS Safety Report 5005198-2 (Version None)
Quarter: 2006Q2

REPORT INFORMATION
  Report Type: 
  Country: None (occurrence: None)
  Receive Date: 20060515
  Receipt Date: 20060428
  Transmission Date: 20061013
  Serious: Yes (Hospitalization, Other)
  Sender: FDA-Public Use
  Company Number: US-2005-009740

PATIENT
  Age: 63 Year
  Sex: Male

DRUGS (5)
  1. BETASERON [Suspect]
     Indication: SECONDARY PROGRESSIVE MULTIPLE SCLEROSIS
     Dosage: SEE IMAGE
     Dates: start: 19950501, end: 19980801
  2. BETASERON [Suspect]
     Indication: SECONDARY PROGRESSIVE MULTIPLE SCLEROSIS
     Dosage: SEE IMAGE
     Dates: start: 20040101
  3. AVONEX [Suspect]
     Indication: SECONDARY PROGRESSIVE MULTIPLE SCLEROSIS
  4. REBIF [Suspect]
     Indication: SECONDARY PROGRESSIVE MULTIPLE SCLEROSIS
  5. BACLOFEN [Concomitant]

REACTIONS (3)
  - CANCER PAIN [None]
  - PROSTATE CANCER [None]
  - SECONDARY PROGRESSIVE MULTIPLE SCLEROSIS [None]
